FAERS Safety Report 5018238-1 (Version None)
Quarter: 2006Q2

REPORT INFORMATION
  Report Type: 
  Country: None (occurrence: None)
  Receive Date: 20060605
  Receipt Date: 20060526
  Transmission Date: 20061013
  Serious: Yes (Hospitalization)
  Sender: FDA-Public Use
  Company Number: 2006UW10306

PATIENT
  Sex: Female

DRUGS (7)
  1. SEROQUEL [Suspect]
     Dates: start: 20060401, end: 20060401
  2. SEROQUEL [Suspect]
     Route: 048
     Dates: start: 20060525
  3. TRAZODONE HCL [Suspect]
  4. SOMA [Suspect]
  5. WELLBUTRIN [Suspect]
     Route: 048
  6. PROZAC [Suspect]
  7. XANAX [Concomitant]
     Dates: start: 20060401

REACTIONS (4)
  - APHASIA [None]
  - CHOKING [None]
  - DIFFICULTY IN WALKING [None]
  - ILL-DEFINED DISORDER [None]
